FAERS Safety Report 4415884-0 (Version None)
Quarter: 2004Q3

REPORT INFORMATION
  Report Type: 
  Country: None (occurrence: None)
  Receive Date: 20040805
  Receipt Date: 20040427
  Transmission Date: 20050211
  Serious: No
  Sender: FDA-Public Use
  Company Number: US-GLAXOSMITHKLINE-A0508639A

PATIENT
  Age: 62 Year
  Sex: Male

DRUGS (6)
  1. AVANDAMET [Suspect]
     Dosage: 500MG TWICE PER DAY
     Route: 048
  2. DIOVAN [Concomitant]
  3. INDURA [Concomitant]
  4. NORVASC [Concomitant]
  5. VIOXX [Concomitant]
  6. NEXIUM [Concomitant]

REACTIONS (2)
  - DYSPNOEA [None]
  - OEDEMA PERIPHERAL [None]
